FAERS Safety Report 23160388 (Version 1)
Quarter: 2023Q4

REPORT INFORMATION
  Report Type: Spontaneous
  Country: US (occurrence: None)
  Receive Date: 20231108
  Receipt Date: 20231108
  Transmission Date: 20240110
  Serious: Yes (Hospitalization)
  Sender: FDA-Public Use
  Company Number: None

PATIENT
  Age: 80 Year
  Sex: Male
  Weight: 93 kg

DRUGS (4)
  1. DARATUMUMAB\HYALURONIDASE-FIHJ [Suspect]
     Active Substance: DARATUMUMAB\HYALURONIDASE-FIHJ
     Dates: end: 20230810
  2. DEXAMETHASONE [Suspect]
     Active Substance: DEXAMETHASONE
     Dates: end: 20230817
  3. LENALIDOMIDE [Suspect]
     Active Substance: LENALIDOMIDE
     Dates: end: 20230819
  4. VELCADE [Suspect]
     Active Substance: BORTEZOMIB
     Dosage: OTHER QUANTITY : 2.9 MG;?
     Dates: end: 20230817

REACTIONS (6)
  - Skin ulcer [None]
  - Abscess [None]
  - Therapy interrupted [None]
  - Blood culture positive [None]
  - Staphylococcal infection [None]
  - Wound infection [None]

NARRATIVE: CASE EVENT DATE: 20230820
